FAERS Safety Report 15093181 (Version 2)
Quarter: 2018Q3

REPORT INFORMATION
  Report Type: Spontaneous
  Country: US (occurrence: JP)
  Receive Date: 20180629
  Receipt Date: 20180817
  Transmission Date: 20181010
  Serious: Yes (Hospitalization, Other)
  Sender: FDA-Public Use
  Company Number: US-SUNOVION-2018SUN002575

PATIENT
  Age: 87 Year
  Sex: Male

DRUGS (1)
  1. INDACATEROL [Suspect]
     Active Substance: INDACATEROL
     Indication: CHRONIC OBSTRUCTIVE PULMONARY DISEASE
     Dosage: UNK
     Route: 055

REACTIONS (5)
  - Cognitive disorder [Unknown]
  - Subdural haematoma [Recovering/Resolving]
  - Gait disturbance [Unknown]
  - Fall [Unknown]
  - Dysstasia [Unknown]

NARRATIVE: CASE EVENT DATE: 201611
